FAERS Safety Report 11698595 (Version 1)
Quarter: 2015Q4

REPORT INFORMATION
  Report Type: Spontaneous
  Country: US (occurrence: US)
  Receive Date: 20151104
  Receipt Date: 20151104
  Transmission Date: 20160304
  Serious: No
  Sender: FDA-Public Use
  Company Number: US-ELI_LILLY_AND_COMPANY-US201012002767

PATIENT
  Age: 47 Year
  Sex: Female

DRUGS (2)
  1. FORTEO [Suspect]
     Active Substance: TERIPARATIDE
     Dosage: 20 UG, DAILY (1/D)
  2. FORTEO [Suspect]
     Active Substance: TERIPARATIDE
     Indication: OSTEOPOROSIS
     Dosage: 20 UG, DAILY (1/D)

REACTIONS (16)
  - Injection site urticaria [Unknown]
  - Drug dose omission [Unknown]
  - Skin disorder [Not Recovered/Not Resolved]
  - Blister [Unknown]
  - Injection site rash [Unknown]
  - Intentional product misuse [Unknown]
  - Injection site erythema [Unknown]
  - Urine abnormality [Unknown]
  - Gait disturbance [Unknown]
  - Injection site bruising [Not Recovered/Not Resolved]
  - Injection site injury [Unknown]
  - Myalgia [Unknown]
  - Migraine [Unknown]
  - Arthralgia [Unknown]
  - Injection site pain [Unknown]
  - Injection site haemorrhage [Not Recovered/Not Resolved]

NARRATIVE: CASE EVENT DATE: 20101208
